FAERS Safety Report 4806779-9 (Version None)
Quarter: 2005Q4

REPORT INFORMATION
  Report Type: 
  Country: None (occurrence: None)
  Receive Date: 20051019
  Receipt Date: 20051019
  Transmission Date: 20060501
  Serious: Yes (Life-Threatening)
  Sender: FDA-Public Use
  Company Number: None

PATIENT
  Sex: Female
  Weight: 91.7 kg

DRUGS (25)
  1. CYTARABINE [Suspect]
     Indication: ACUTE MYELOID LEUKAEMIA
     Dosage: 100 MG/M2 /D IV CONTIN
     Route: 042
     Dates: start: 20050928, end: 20051004
  2. DAUNORUBICIN [Suspect]
     Indication: ACUTE MYELOID LEUKAEMIA
     Dosage: 45 MG/M2 IV QD
     Route: 042
     Dates: start: 20050928, end: 20050930
  3. PREVACID [Concomitant]
  4. CEFTAZIDIME [Concomitant]
  5. VANCOMYCIN [Concomitant]
  6. CIPRO [Concomitant]
  7. CYMBALTA [Concomitant]
  8. PERIDEX MOUTHWASH [Concomitant]
  9. ACYCLOVIR [Concomitant]
  10. CASPOFUNGIN [Concomitant]
  11. FLAGYL [Concomitant]
  12. MARY'S MAJOR MOUTHWASH [Concomitant]
  13. PROMETHAZINE [Concomitant]
  14. ATIVAN [Concomitant]
  15. MORPHINE [Concomitant]
  16. POTASSIUM CHLORIDE [Concomitant]
  17. IMODIUM [Concomitant]
  18. REGLAN [Concomitant]
  19. NEUTROPHOS [Concomitant]
  20. TRAZODONE HCL [Concomitant]
  21. ABELCET [Concomitant]
  22. DAPTOMYCIN [Concomitant]
  23. BENADRYL [Concomitant]
  24. TYLENOL (CAPLET) [Concomitant]
  25. MUCOMYST [Concomitant]

REACTIONS (14)
  - ATRIAL FIBRILLATION [None]
  - CHEST PAIN [None]
  - ELECTROCARDIOGRAM T WAVE ABNORMAL [None]
  - HAEMODYNAMIC INSTABILITY [None]
  - HYPOTENSION [None]
  - HYPOXIA [None]
  - INFECTION [None]
  - PERICARDIAL EFFUSION [None]
  - PERICARDITIS [None]
  - PULMONARY OEDEMA [None]
  - RESPIRATORY DISTRESS [None]
  - SHOULDER PAIN [None]
  - SINUS TACHYCARDIA [None]
  - TACHYPNOEA [None]
